FAERS Safety Report 24887276 (Version 1)
Quarter: 2025Q1

REPORT INFORMATION
  Report Type: Spontaneous
  Country: GB (occurrence: GB)
  Receive Date: 20250127
  Receipt Date: 20250127
  Transmission Date: 20250409
  Serious: Yes (Other)
  Sender: AUROBINDO
  Company Number: GB-MHRA-TPP43735462C2649239YC1736431130114

PATIENT
  Age: 84 Year
  Sex: Female
  Weight: 68 kg

DRUGS (3)
  1. CLARITHROMYCIN [Suspect]
     Active Substance: CLARITHROMYCIN
     Indication: Ill-defined disorder
     Dosage: 500 MILLIGRAM, TWO TIMES A DAY
     Route: 065
     Dates: start: 20250102
  2. AMOXICILLIN [Concomitant]
     Active Substance: AMOXICILLIN
     Indication: Ill-defined disorder
     Dosage: 1 DOSAGE FORM, 3 TIMES A DAY
     Route: 065
     Dates: start: 20241224
  3. CALCI D [Concomitant]
     Indication: Ill-defined disorder
     Route: 065
     Dates: start: 20240321

REACTIONS (5)
  - Psoriasis [Unknown]
  - Lip swelling [Unknown]
  - Flatulence [Unknown]
  - Taste disorder [Unknown]
  - Diarrhoea [Recovering/Resolving]
